FAERS Safety Report 20607532 (Version 2)
Quarter: 2022Q1

REPORT INFORMATION
  Report Type: Report from Study
  Country: US (occurrence: US)
  Receive Date: 20220317
  Receipt Date: 20220322
  Transmission Date: 20220424
  Serious: Yes (Hospitalization, Other)
  Sender: FDA-Public Use
  Company Number: US-JNJFOC-20211128686

PATIENT
  Age: 53 Year
  Sex: Male
  Weight: 86.4 kg

DRUGS (5)
  1. SELEXIPAG [Suspect]
     Active Substance: SELEXIPAG
     Indication: Pulmonary arterial hypertension
     Route: 048
  2. SELEXIPAG [Suspect]
     Active Substance: SELEXIPAG
     Route: 048
  3. SELEXIPAG [Suspect]
     Active Substance: SELEXIPAG
     Route: 048
  4. SELEXIPAG [Suspect]
     Active Substance: SELEXIPAG
     Route: 048
  5. SILDENAFIL CITRATE [Suspect]
     Active Substance: SILDENAFIL CITRATE
     Indication: Product used for unknown indication
     Route: 065

REACTIONS (32)
  - Syncope [Unknown]
  - Diabetes mellitus [Unknown]
  - Neuropathy peripheral [Unknown]
  - Diarrhoea [Not Recovered/Not Resolved]
  - Nausea [Unknown]
  - Vomiting [Unknown]
  - Hernia [Unknown]
  - Dry mouth [Unknown]
  - Urinary incontinence [Unknown]
  - Hypertension [Unknown]
  - Blood cholesterol increased [Unknown]
  - Hallucination [Unknown]
  - Pulmonary hypertension [Unknown]
  - Abdominal pain [Unknown]
  - Arthralgia [Unknown]
  - Fall [Unknown]
  - Weight decreased [Not Recovered/Not Resolved]
  - Memory impairment [Not Recovered/Not Resolved]
  - Illness [Unknown]
  - Treatment noncompliance [Unknown]
  - Disturbance in attention [Unknown]
  - Thinking abnormal [Not Recovered/Not Resolved]
  - Headache [Unknown]
  - Decreased appetite [Unknown]
  - Influenza like illness [Unknown]
  - Hyperventilation [Unknown]
  - Anxiety [Unknown]
  - Depression [Unknown]
  - Liver disorder [Unknown]
  - Abnormal dreams [Unknown]
  - Paranoia [Unknown]
  - Vasodilatation [Unknown]

NARRATIVE: CASE EVENT DATE: 20211101
